FAERS Safety Report 24643484 (Version 1)
Quarter: 2024Q4

REPORT INFORMATION
  Report Type: Spontaneous
  Country: US (occurrence: US)
  Receive Date: 20241120
  Receipt Date: 20241120
  Transmission Date: 20250115
  Serious: No
  Sender: SANOFI AVENTIS
  Company Number: US-SA-2024SA335588

PATIENT
  Age: 57 Year

DRUGS (3)
  1. LANTUS [Suspect]
     Active Substance: INSULIN GLARGINE
     Indication: Diabetes mellitus
     Dosage: 85 IU, QD
     Route: 058
  2. LANTUS [Suspect]
     Active Substance: INSULIN GLARGINE
     Indication: Insulin therapy
  3. LANTUS [Suspect]
     Active Substance: INSULIN GLARGINE
     Indication: Diabetic retinopathy

REACTIONS (1)
  - Off label use [Unknown]
